FAERS Safety Report 25396710 (Version 2)
Quarter: 2025Q3

REPORT INFORMATION
  Report Type: Spontaneous
  Country: US (occurrence: US)
  Receive Date: 20250604
  Receipt Date: 20250716
  Transmission Date: 20251021
  Serious: Yes (Other)
  Sender: GLAUKOS
  Company Number: US-GLK-000646

PATIENT
  Age: 72 Year
  Sex: Female

DRUGS (10)
  1. IDOSE TR [Suspect]
     Active Substance: TRAVOPROST
     Indication: Ocular hypertension
     Route: 047
     Dates: start: 20241220, end: 20241220
  2. IDOSE TR [Suspect]
     Active Substance: TRAVOPROST
     Indication: Ocular surface disease
  3. DOXYCYCLINE [Concomitant]
     Active Substance: DOXYCYCLINE
  4. DOXYCYCLINE [Concomitant]
     Active Substance: DOXYCYCLINE
  5. MOXIFLOXACIN [Concomitant]
     Active Substance: MOXIFLOXACIN
  6. DORZOLAMIDE\TIMOLOL [Concomitant]
     Active Substance: DORZOLAMIDE\TIMOLOL
  7. PREDNISOLONE ACETATE [Concomitant]
     Active Substance: PREDNISOLONE ACETATE
  8. ZIOPTAN [Concomitant]
     Active Substance: TAFLUPROST
  9. PREDNISONE ACETATE [Concomitant]
     Active Substance: PREDNISONE ACETATE
  10. PREDNISONE ACETATE [Concomitant]
     Active Substance: PREDNISONE ACETATE
     Route: 048

REACTIONS (3)
  - Ulcerative keratitis [Unknown]
  - Medical device removal [Unknown]
  - Uveitis [Unknown]
